FAERS Safety Report 5076323-2 (Version None)
Quarter: 2006Q3

REPORT INFORMATION
  Report Type: 
  Country: None (occurrence: None)
  Receive Date: 20060807
  Receipt Date: 20060726
  Transmission Date: 20061208
  Serious: Yes (Other)
  Sender: FDA-Public Use
  Company Number: VE200607004985

PATIENT
  Age: 33 Year
  Sex: Female

DRUGS (10)
  1. CYMBALTA [Suspect]
     Indication: DEPRESSION
     Dosage: 60 MG, DAILY (1/D), ORAL
     Route: 048
     Dates: start: 20060325
  2. LANTUS [Concomitant]
  3. NOVORAPID /DEN/ (INSULIN ASPART) [Concomitant]
  4. SOMESE (TRIAZOLAM) [Concomitant]
  5. NEURONTIN [Concomitant]
  6. DETRUSITOL /SWE/ (TOLTERODINE L-TARTRATE) [Concomitant]
  7. ZOCOR [Concomitant]
  8. ASCORBIC ACID [Concomitant]
  9. VITAMIN E [Concomitant]
  10. INDERAL [Concomitant]

REACTIONS (9)
  - DIZZINESS [None]
  - DYSKINESIA [None]
  - FEAR [None]
  - HALLUCINATION [None]
  - NAUSEA [None]
  - ROAD TRAFFIC ACCIDENT [None]
  - SUICIDAL IDEATION [None]
  - TREMOR [None]
  - VISION BLURRED [None]
